FAERS Safety Report 5674288-3 (Version None)
Quarter: 2008Q1

REPORT INFORMATION
  Report Type: 
  Country: None (occurrence: None)
  Receive Date: 20080320
  Receipt Date: 20080305
  Transmission Date: 20080703
  Serious: Yes (Hospitalization)
  Sender: FDA-Public Use
  Company Number: US-BAYER-200713836BWH

PATIENT
  Age: 34 Year
  Sex: Female

DRUGS (4)
  1. AVELOX [Suspect]
     Indication: ASTHMA
     Route: 048
     Dates: start: 20070924
  2. AVELOX [Suspect]
     Route: 048
     Dates: start: 20070101
  3. DEPO-MEDROL [Concomitant]
     Route: 030
  4. PREDNISONE TAB [Concomitant]

REACTIONS (3)
  - ANAPHYLACTIC REACTION [None]
  - DYSPNOEA [None]
  - SWELLING [None]
